FAERS Safety Report 7107676-9 (Version None)
Quarter: 2010Q4

REPORT INFORMATION
  Report Type: 
  Country: None (occurrence: None)
  Receive Date: 20101117
  Receipt Date: 20101110
  Transmission Date: 20110411
  Serious: Yes (Death)
  Sender: FDA-Public Use
  Company Number: JP-JNJFOC-20100602209

PATIENT
  Sex: Female
  Weight: 39 kg

DRUGS (4)
  1. ITRIZOLE [Suspect]
     Indication: PNEUMONIA CYTOMEGALOVIRAL
     Route: 041
  2. GANCICLOVIR [Suspect]
     Indication: PROPHYLAXIS
     Route: 042
  3. INSULIN HUMAN [Suspect]
     Indication: DIABETES MELLITUS
     Route: 042
  4. ITRACONAZOLE [Suspect]
     Indication: ILL-DEFINED DISORDER
     Route: 048

REACTIONS (7)
  - BLOOD PRESSURE INCREASED [None]
  - CHRONIC LYMPHOCYTIC LEUKAEMIA RECURRENT [None]
  - HYPOGLYCAEMIA [None]
  - NEUTROPHIL PERCENTAGE INCREASED [None]
  - TONIC CONVULSION [None]
  - VOMITING [None]
  - WHITE BLOOD CELL COUNT DECREASED [None]
